FAERS Safety Report 5076157-9 (Version None)
Quarter: 2006Q3

REPORT INFORMATION
  Report Type: 
  Country: None (occurrence: None)
  Receive Date: 20060804
  Receipt Date: 20060725
  Transmission Date: 20061208
  Serious: Yes (Hospitalization)
  Sender: FDA-Public Use
  Company Number: 2006BI006844

PATIENT
  Age: 64 Year
  Sex: Female
  Weight: 90 kg

DRUGS (9)
  1. AVONEX [Suspect]
     Indication: MULTIPLE SCLEROSIS
     Dosage: 30 UG;QW;IM
     Dates: start: 19980101, end: 20010101
  2. AVONEX [Suspect]
     Indication: MULTIPLE SCLEROSIS
     Dosage: 30 UG;QW;IM
     Route: 030
     Dates: start: 20010101, end: 20060401
  3. AVONEX [Suspect]
     Indication: MULTIPLE SCLEROSIS
     Dosage: 30 UG;QW;IM
     Route: 030
     Dates: start: 20060501
  4. ISOPTIN [Concomitant]
  5. TRIAMTERENE AND HYDROCHLOROTHIAZIDE [Concomitant]
  6. ASPIRIN [Concomitant]
  7. MYDOCALM [Concomitant]
  8. NOVAMINSULFON [Concomitant]
  9. ZOLPIDEM [Concomitant]

REACTIONS (15)
  - ACCIDENT AT HOME [None]
  - BLOOD PRESSURE SYSTOLIC INCREASED [None]
  - CONDITION AGGRAVATED [None]
  - DEPRESSION [None]
  - FATIGUE [None]
  - FEMUR FRACTURE [None]
  - FRACTURE DISPLACEMENT [None]
  - INFLUENZA LIKE ILLNESS [None]
  - LOWER LIMB FRACTURE [None]
  - LUMBAR VERTEBRAL FRACTURE [None]
  - MOBILITY DECREASED [None]
  - MULTIPLE SCLEROSIS [None]
  - MUSCLE SPASTICITY [None]
  - PYREXIA [None]
  - THERAPY NON-RESPONDER [None]
